FAERS Safety Report 4644084-4 (Version None)
Quarter: 2005Q2

REPORT INFORMATION
  Report Type: 
  Country: None (occurrence: None)
  Receive Date: 20050331
  Receipt Date: 20041223
  Transmission Date: 20051028
  Serious: No
  Sender: FDA-Public Use
  Company Number: 04P-163-0284937-00

PATIENT
  Age: 44 Year
  Sex: Female
  Weight: 106 kg

DRUGS (11)
  1. HUMIRA [Suspect]
     Indication: RHEUMATOID ARTHRITIS
     Dosage: 40 MG, 1 IN 1 WK, SUBCUTANEOUS; 40 MG, 1 IN 2 WK, SUBCUTANEOUS
     Route: 058
     Dates: start: 20020401, end: 20030401
  2. HUMIRA [Suspect]
     Indication: RHEUMATOID ARTHRITIS
     Dosage: 40 MG, 1 IN 1 WK, SUBCUTANEOUS; 40 MG, 1 IN 2 WK, SUBCUTANEOUS
     Route: 058
     Dates: start: 20030401
  3. METHOTREXATE [Concomitant]
  4. FOLIC ACID [Concomitant]
  5. HYDROXYCHLOROQUINE PHOSPHATE [Concomitant]
  6. AZATHIOPRINE [Concomitant]
  7. TRAMADOL HCL [Concomitant]
  8. CALCIUM GLUCONATE [Concomitant]
  9. MULTIVITAMINS AND IRON [Concomitant]
  10. PREDNISONE [Concomitant]
  11. DYAZIDE [Concomitant]

REACTIONS (1)
  - SINUSITIS [None]
